FAERS Safety Report 7669206-2 (Version None)
Quarter: 2011Q3

REPORT INFORMATION
  Report Type: 
  Country: None (occurrence: None)
  Receive Date: 20110808
  Receipt Date: 20110728
  Transmission Date: 20111222
  Serious: Yes (Hospitalization, Other)
  Sender: FDA-Public Use
  Company Number: PHHY2011US58966

PATIENT
  Sex: Female

DRUGS (3)
  1. IBUPROFEN [Concomitant]
     Indication: PAIN
  2. ORTHO-NOVUM [Suspect]
     Indication: ENDOMETRIOSIS
     Dosage: 1/35, ONCE A DAY
     Route: 048
     Dates: start: 20100513, end: 20100609
  3. FEMARA [Suspect]
     Indication: ENDOMETRIOSIS
     Dosage: 2.5 MG, QD
     Route: 048
     Dates: start: 20100513, end: 20100609

REACTIONS (32)
  - DYSARTHRIA [None]
  - PAIN IN EXTREMITY [None]
  - SINUS HEADACHE [None]
  - AMNESIA [None]
  - COORDINATION ABNORMAL [None]
  - FEELING ABNORMAL [None]
  - HOT FLUSH [None]
  - MYALGIA [None]
  - ORAL PAIN [None]
  - ARTHRALGIA [None]
  - FATIGUE [None]
  - DISORIENTATION [None]
  - BACK PAIN [None]
  - OESOPHAGEAL PAIN [None]
  - MUSCLE SPASMS [None]
  - JOINT STIFFNESS [None]
  - OEDEMA PERIPHERAL [None]
  - HEMIPARESIS [None]
  - SENSATION OF HEAVINESS [None]
  - PAIN IN JAW [None]
  - CHEST PAIN [None]
  - PARAESTHESIA [None]
  - DYSPNOEA [None]
  - ALOPECIA [None]
  - HYPOAESTHESIA [None]
  - DISTURBANCE IN ATTENTION [None]
  - GINGIVAL PAIN [None]
  - THROMBOSIS [None]
  - PAIN [None]
  - SENSITIVITY OF TEETH [None]
  - DYSPHAGIA [None]
  - HEADACHE [None]
